FAERS Safety Report 25329185 (Version 3)
Quarter: 2025Q3

REPORT INFORMATION
  Report Type: Report from Study
  Country: US (occurrence: US)
  Receive Date: 20250519
  Receipt Date: 20250926
  Transmission Date: 20251020
  Serious: No
  Sender: SUNOVION
  Company Number: US-SUMITOMO PHARMA SWITZERLAND GMBH-2025SPA005023

PATIENT
  Age: 63 Year
  Sex: Male

DRUGS (6)
  1. ORGOVYX [Suspect]
     Active Substance: RELUGOLIX
     Indication: Prostate cancer
     Dosage: 120 MG, QD
     Route: 048
     Dates: start: 202504
  2. ATORVASTATIN CALCIUM [Concomitant]
     Active Substance: ATORVASTATIN CALCIUM
  3. EZETIMIBE [Concomitant]
     Active Substance: EZETIMIBE
  4. LOSARTAN POTASSIUM [Concomitant]
     Active Substance: LOSARTAN POTASSIUM
  5. METFORMIN HYDROCHLORIDE [Concomitant]
     Active Substance: METFORMIN HYDROCHLORIDE
  6. TADALAFIL [Concomitant]
     Active Substance: TADALAFIL

REACTIONS (4)
  - Dysuria [Unknown]
  - Hot flush [Not Recovered/Not Resolved]
  - Therapy interrupted [Recovered/Resolved]
  - Incorrect dose administered [Recovered/Resolved]
